FAERS Safety Report 9913595 (Version 1)
Quarter: 2014Q1

REPORT INFORMATION
  Report Type: Spontaneous
  Country: US (occurrence: None)
  Receive Date: 20140218
  Receipt Date: 20140218
  Transmission Date: 20141002
  Serious: Yes (Hospitalization)
  Sender: FDA-Public Use
  Company Number: None

PATIENT
  Age: 67 Year
  Sex: Male
  Weight: 78.4 kg

DRUGS (1)
  1. CARBAMAZEPINE [Suspect]
     Indication: PAIN
     Route: 048
     Dates: start: 20120814, end: 20130823

REACTIONS (4)
  - Rash [None]
  - Arthropod bite [None]
  - Cellulitis staphylococcal [None]
  - Abscess limb [None]
